FAERS Safety Report 5940497-9 (Version None)
Quarter: 2008Q4

REPORT INFORMATION
  Report Type: 
  Country: None (occurrence: None)
  Receive Date: 20081021
  Receipt Date: 20080505
  Transmission Date: 20090506
  Serious: Yes (Other)
  Sender: FDA-Public Use
  Company Number: HQWYE289105SEP06

PATIENT
  Age: 65 Year
  Sex: Female

DRUGS (5)
  1. PREMARIN [Suspect]
     Indication: MENOPAUSAL SYMPTOMS
  2. CURRETAB [Suspect]
  3. ESTRATAB [Suspect]
  4. MENEST [Suspect]
  5. PROGESTIN INJ [Suspect]

REACTIONS (1)
  - BREAST CANCER [None]
